FAERS Safety Report 4567519-4 (Version None)
Quarter: 2005Q1

REPORT INFORMATION
  Report Type: 
  Country: None (occurrence: None)
  Receive Date: 20050201
  Receipt Date: 20041125
  Transmission Date: 20050727
  Serious: Yes (Hospitalization, Disabling, Other)
  Sender: FDA-Public Use
  Company Number: BE-MERCK-0411BEL00042

PATIENT
  Age: 73 Year
  Sex: Female
  Weight: 80 kg

DRUGS (5)
  1. VIOXX [Suspect]
     Indication: OSTEOARTHRITIS
     Route: 048
     Dates: start: 20000330, end: 20041001
  2. ACETAMINOPHEN AND CODEINE PHOSPHATE [Concomitant]
     Route: 065
  3. METILDIGOXIN [Concomitant]
     Route: 048
     Dates: start: 20031001
  4. BISOPROLOL FUMARATE [Concomitant]
     Route: 048
     Dates: start: 20031001
  5. LISINOPRIL [Concomitant]
     Route: 048
     Dates: start: 20031001

REACTIONS (8)
  - ANGINA PECTORIS [None]
  - AORTIC ANEURYSM [None]
  - ARRHYTHMIA [None]
  - ATRIAL FIBRILLATION [None]
  - DYSPNOEA [None]
  - GENERAL PHYSICAL HEALTH DETERIORATION [None]
  - MYOCARDIAL INFARCTION [None]
  - SUPRAVENTRICULAR EXTRASYSTOLES [None]
